FAERS Safety Report 18187991 (Version 1)
Quarter: 2020Q3

REPORT INFORMATION
  Report Type: Spontaneous
  Country: CN (occurrence: CN)
  Receive Date: 20200824
  Receipt Date: 20200824
  Transmission Date: 20201103
  Serious: Yes (Other)
  Sender: FDA-Public Use
  Company Number: CN-BAYER-2020-174652

PATIENT
  Age: 64 Year
  Sex: Male
  Weight: 65 kg

DRUGS (1)
  1. AVELOX [Suspect]
     Active Substance: MOXIFLOXACIN HYDROCHLORIDE
     Indication: INFECTION
     Dosage: 250 ML, QD
     Route: 041
     Dates: start: 20200623, end: 20200625

REACTIONS (4)
  - Confusional state [Recovered/Resolved]
  - Dysphoria [Recovered/Resolved]
  - Delirium [Recovered/Resolved]
  - Mental disorder [Recovered/Resolved]

NARRATIVE: CASE EVENT DATE: 20200625
